FAERS Safety Report 8316820-7 (Version None)
Quarter: 2012Q2

REPORT INFORMATION
  Report Type: 
  Country: None (occurrence: None)
  Receive Date: 20120425
  Receipt Date: 20120423
  Transmission Date: 20120825
  Serious: Yes (Life-Threatening, Hospitalization, Other)
  Sender: FDA-Public Use
  Company Number: ADR-2009-6121

PATIENT
  Age: 31 Year
  Sex: Female

DRUGS (1)
  1. LIORESAL [Suspect]
     Indication: MUSCLE SPASTICITY
     Dosage: 199.9 MCG, DAILY, INTRA
     Route: 037

REACTIONS (16)
  - DRUG INEFFECTIVE [None]
  - DEVICE BREAKAGE [None]
  - DEVICE DISLOCATION [None]
  - AGITATION [None]
  - MALAISE [None]
  - DEVICE FAILURE [None]
  - DISCOMFORT [None]
  - OVERDOSE [None]
  - DRUG WITHDRAWAL SYNDROME [None]
  - PRURITUS [None]
  - PAIN IN EXTREMITY [None]
  - DEVICE CONNECTION ISSUE [None]
  - MUSCLE SPASTICITY [None]
  - INJURY [None]
  - DEVICE MALFUNCTION [None]
  - HYPERSOMNIA [None]
